FAERS Safety Report 8680008 (Version 2)
Quarter: 2013Q1

REPORT INFORMATION
  Report Type: Spontaneous
  Country: US (occurrence: None)
  Receive Date: 20120706
  Receipt Date: 20130219
  Transmission Date: 20140127
  Serious: Yes (Other)
  Sender: FDA-Public Use
  Company Number: DSU-2012-05222

PATIENT
  Age: 64 Year
  Sex: Male

DRUGS (2)
  1. OLMESARTAN MEDOXOMIL [Suspect]
     Dosage: UNKNOWN (QD), PER ORAL
     Route: 048
     Dates: start: 2006, end: 200907
  2. HECTOROL (DOXERCALCIFEROL) (DEXERCALCIFEROL) [Concomitant]

REACTIONS (2)
  - WEIGHT DECREASED [None]
  - MALABSORPTION [None]
